FAERS Safety Report 18029497 (Version 1)
Quarter: 2020Q3

REPORT INFORMATION
  Report Type: Report from Study
  Country: CA (occurrence: CA)
  Receive Date: 20200716
  Receipt Date: 20200716
  Transmission Date: 20201103
  Serious: Yes (Hospitalization)
  Sender: FDA-Public Use
  Company Number: CA-BAUSCH-BL-2020-019535

PATIENT
  Age: 89 Year
  Sex: Male

DRUGS (6)
  1. CICLESONIDE [Suspect]
     Active Substance: CICLESONIDE
     Indication: PRODUCT USED FOR UNKNOWN INDICATION
     Route: 065
  2. PREDNISONE. [Suspect]
     Active Substance: PREDNISONE
     Indication: ASTHMA
     Route: 048
  3. ZENHALE [Suspect]
     Active Substance: FORMOTEROL FUMARATE\MOMETASONE FUROATE
     Indication: PRODUCT USED FOR UNKNOWN INDICATION
     Dosage: AEROSOL, METERED DOSE
  4. SPIRIVA RESPIMAT [Suspect]
     Active Substance: TIOTROPIUM BROMIDE
     Indication: PRODUCT USED FOR UNKNOWN INDICATION
     Dosage: SOLUTION, FOR ORAL INHALATION WITH RESPIMAT INHALER ONLY 0.5 G/DOSE
  5. PREDNISONE. [Suspect]
     Active Substance: PREDNISONE
     Route: 048
  6. SALBUTAMOL SULFATE [Suspect]
     Active Substance: ALBUTEROL SULFATE
     Indication: PRODUCT USED FOR UNKNOWN INDICATION

REACTIONS (5)
  - Therapeutic product effect incomplete [Unknown]
  - Loss of personal independence in daily activities [Unknown]
  - Hospitalisation [Unknown]
  - Asthma [Unknown]
  - Dyspnoea [Unknown]
